FAERS Safety Report 12227254 (Version 1)
Quarter: 2016Q1

REPORT INFORMATION
  Report Type: Spontaneous
  Country: CO (occurrence: CO)
  Receive Date: 20160331
  Receipt Date: 20160331
  Transmission Date: 20160526
  Serious: Yes (Other)
  Sender: FDA-Public Use
  Company Number: CO-009507513-1603COL013469

PATIENT
  Sex: Female

DRUGS (1)
  1. ELOVENT TWISTHALER [Suspect]
     Active Substance: MOMETASONE FUROATE
     Dosage: 400 MICROGRAM, QD
     Route: 055

REACTIONS (1)
  - Respiratory distress [Unknown]
